FAERS Safety Report 11315952 (Version 1)
Quarter: 2015Q3

REPORT INFORMATION
  Report Type: Spontaneous
  Country: IE (occurrence: None)
  Receive Date: 20150724
  Receipt Date: 20150724
  Transmission Date: 20151125
  Serious: Yes (Death, Hospitalization)
  Sender: FDA-Public Use
  Company Number: 2015IL0408

PATIENT
  Age: 2 Year
  Sex: Female

DRUGS (1)
  1. KINERET [Suspect]
     Active Substance: ANAKINRA
     Indication: DERMATOMYOSITIS
     Route: 058

REACTIONS (2)
  - Dermatomyositis [None]
  - Disease progression [None]
